FAERS Safety Report 23103598 (Version 2)
Quarter: 2023Q4

REPORT INFORMATION
  Report Type: Spontaneous
  Country: FR (occurrence: FR)
  Receive Date: 20231025
  Receipt Date: 20231108
  Transmission Date: 20240109
  Serious: Yes (Other)
  Sender: FDA-Public Use
  Company Number: FR-VERTEX PHARMACEUTICALS-2023-014941

PATIENT
  Sex: Male

DRUGS (16)
  1. ELEXACAFTOR\IVACAFTOR\TEZACAFTOR [Suspect]
     Active Substance: ELEXACAFTOR\IVACAFTOR\TEZACAFTOR
     Indication: Cystic fibrosis
     Dosage: FULL DOSE
     Route: 048
     Dates: start: 20200408, end: 20200602
  2. ELEXACAFTOR\IVACAFTOR\TEZACAFTOR [Suspect]
     Active Substance: ELEXACAFTOR\IVACAFTOR\TEZACAFTOR
     Dosage: FULL, 2 TABS IN AM
     Route: 048
     Dates: start: 20200611
  3. KALYDECO [Suspect]
     Active Substance: IVACAFTOR
     Indication: Cystic fibrosis
     Dosage: FULL DOSE
     Route: 048
     Dates: start: 20200408, end: 20200602
  4. KALYDECO [Suspect]
     Active Substance: IVACAFTOR
     Dosage: FULL, 1 TAB IN PM
     Route: 048
     Dates: start: 20211116
  5. ALBUTEROL [Concomitant]
     Active Substance: ALBUTEROL
  6. ESOMEPRAZOLE [Concomitant]
     Active Substance: ESOMEPRAZOLE
  7. URSODIOL [Concomitant]
     Active Substance: URSODIOL
  8. LANTUS [Concomitant]
     Active Substance: INSULIN GLARGINE
  9. NOVORAPID [Concomitant]
     Active Substance: INSULIN ASPART
  10. RAMIPRIL [Concomitant]
     Active Substance: RAMIPRIL
  11. ESIDREX [Concomitant]
     Active Substance: HYDROCHLOROTHIAZIDE
  12. CREON [Concomitant]
     Active Substance: PANCRELIPASE AMYLASE\PANCRELIPASE LIPASE\PANCRELIPASE PROTEASE
     Dosage: 25,000
  13. DOLIPRANE [Concomitant]
     Active Substance: ACETAMINOPHEN
  14. BRICANYL [Concomitant]
     Active Substance: TERBUTALINE SULFATE
     Dosage: AEROSOL 5 MG/2 ML
  15. NASONEX [Concomitant]
     Active Substance: MOMETASONE FUROATE
  16. BECLOMETHASONE DIPROPIONATE\FORMOTEROL FUMARATE\GLYCOPYRROLATE [Concomitant]
     Active Substance: BECLOMETHASONE DIPROPIONATE\FORMOTEROL FUMARATE\GLYCOPYRROLATE

REACTIONS (2)
  - Osteoarthritis [Not Recovered/Not Resolved]
  - Lipase increased [Recovered/Resolved]

NARRATIVE: CASE EVENT DATE: 20200101
